FAERS Safety Report 7550968-X (Version None)
Quarter: 2011Q2

REPORT INFORMATION
  Report Type: 
  Country: None (occurrence: None)
  Receive Date: 20110616
  Receipt Date: 20110609
  Transmission Date: 20111010
  Serious: Yes (Death, Hospitalization, Other)
  Sender: FDA-Public Use
  Company Number: PE-ASTELLAS-2011US002946

PATIENT
  Sex: Male

DRUGS (1)
  1. TARCEVA [Suspect]
     Indication: LUNG NEOPLASM MALIGNANT
     Dosage: 150 MG, UID/QD
     Route: 048
     Dates: start: 20081201, end: 20090111

REACTIONS (4)
  - DIARRHOEA [None]
  - DEATH [None]
  - SEPSIS [None]
  - RESPIRATORY ARREST [None]
